FAERS Safety Report 25789456 (Version 1)
Quarter: 2025Q3

REPORT INFORMATION
  Report Type: Spontaneous
  Country: US (occurrence: US)
  Receive Date: 20250911
  Receipt Date: 20250911
  Transmission Date: 20251020
  Serious: Yes (Other)
  Sender: COOPERSURGICAL
  Company Number: US-COOPERSURGICAL, INC.-2025CPS006527

PATIENT
  Sex: Female
  Weight: 102.95 kg

DRUGS (2)
  1. PARAGARD T 380A [Suspect]
     Active Substance: COPPER
     Indication: Contraception
     Route: 015
     Dates: start: 20130814
  2. ALBUTEROL [Concomitant]
     Active Substance: ALBUTEROL
     Dates: start: 20220314, end: 20250214

REACTIONS (23)
  - Infertility female [Recovered/Resolved]
  - Device breakage [Not Recovered/Not Resolved]
  - Foreign body in reproductive tract [Not Recovered/Not Resolved]
  - Complication of device removal [Not Recovered/Not Resolved]
  - Embedded device [Not Recovered/Not Resolved]
  - Off label use [Unknown]
  - Complication associated with device [Unknown]
  - Abdominal tenderness [Unknown]
  - Coital bleeding [Unknown]
  - Procedural pain [Recovered/Resolved]
  - Post procedural infection [Unknown]
  - Anxiety [Recovered/Resolved]
  - Emotional distress [Recovered/Resolved]
  - Chlamydial infection [Unknown]
  - Heavy menstrual bleeding [Unknown]
  - Pain [Unknown]
  - Muscle spasms [Unknown]
  - Abnormal uterine bleeding [Recovered/Resolved]
  - Pelvic pain [Unknown]
  - Intermenstrual bleeding [Unknown]
  - Infection [Unknown]
  - Discomfort [Unknown]
  - Unevaluable event [Unknown]

NARRATIVE: CASE EVENT DATE: 20140101
